FAERS Safety Report 24985464 (Version 1)
Quarter: 2025Q1

REPORT INFORMATION
  Report Type: Spontaneous
  Country: FR (occurrence: FR)
  Receive Date: 20250219
  Receipt Date: 20250219
  Transmission Date: 20250408
  Serious: Yes (Other)
  Sender: MYLAN
  Company Number: FR-MYLANLABS-2025M1014470

PATIENT
  Age: 28 Year
  Sex: Male

DRUGS (6)
  1. VALACYCLOVIR HYDROCHLORIDE [Suspect]
     Active Substance: VALACYCLOVIR HYDROCHLORIDE
     Indication: Erythema multiforme
     Route: 065
  2. LENALIDOMIDE [Suspect]
     Active Substance: LENALIDOMIDE
     Indication: Erythema multiforme
     Route: 065
  3. COLCHICINE [Suspect]
     Active Substance: COLCHICINE
     Indication: Erythema multiforme
     Route: 065
  4. DAPSONE [Suspect]
     Active Substance: DAPSONE
     Indication: Erythema multiforme
     Route: 065
  5. RITUXIMAB [Suspect]
     Active Substance: RITUXIMAB
     Indication: Erythema multiforme
     Route: 065
  6. THALIDOMIDE [Concomitant]
     Active Substance: THALIDOMIDE
     Indication: Erythema multiforme
     Route: 065

REACTIONS (4)
  - Treatment failure [Unknown]
  - Headache [Unknown]
  - Fatigue [Unknown]
  - Off label use [Unknown]
